FAERS Safety Report 8524895-5 (Version None)
Quarter: 2012Q3

REPORT INFORMATION
  Report Type: 
  Country: None (occurrence: None)
  Receive Date: 20120720
  Receipt Date: 20120718
  Transmission Date: 20120928
  Serious: Yes (Life-Threatening, Hospitalization)
  Sender: FDA-Public Use
  Company Number: CA-B.I. PHARMACEUTICALS,INC./RIDGEFIELD-2012-CN-01552CN

PATIENT

DRUGS (5)
  1. HEPARIN [Suspect]
     Route: 042
     Dates: start: 20120612, end: 20120612
  2. PROTAMINE SULFATE [Concomitant]
     Dates: start: 20120612
  3. PRADAXA [Suspect]
     Indication: ATRIAL FIBRILLATION
  4. PRADAXA [Suspect]
     Indication: CARDIAC ABLATION
     Dosage: 300 NR
     Dates: start: 20120612, end: 20120616
  5. PANTOPRAZOLE SODIUM [Concomitant]

REACTIONS (2)
  - ATRIAL FLUTTER [None]
  - ATRIAL THROMBOSIS [None]
